FAERS Safety Report 18102647 (Version 1)
Quarter: 2020Q3

REPORT INFORMATION
  Report Type: Spontaneous
  Country: US (occurrence: US)
  Receive Date: 20200803
  Receipt Date: 20200803
  Transmission Date: 20201103
  Serious: No
  Sender: FDA-Public Use
  Company Number: US-SA-2020SA194110

PATIENT

DRUGS (1)
  1. DUPIXENT [Suspect]
     Active Substance: DUPILUMAB
     Indication: DERMATITIS ATOPIC
     Dosage: 300 MG, OTHER
     Route: 058
     Dates: start: 201705

REACTIONS (3)
  - Erythema [Unknown]
  - Pruritus [Unknown]
  - Periorbital irritation [Unknown]

NARRATIVE: CASE EVENT DATE: 20200710
